APPROVED DRUG PRODUCT: CARISOPRODOL
Active Ingredient: CARISOPRODOL
Strength: 350MG
Dosage Form/Route: TABLET;ORAL
Application: A081025 | Product #001 | TE Code: AA
Applicant: SENORES PHARMACEUTICALS INC
Approved: Apr 13, 1989 | RLD: No | RS: No | Type: RX